FAERS Safety Report 9415096 (Version 2)
Quarter: 2013Q3

REPORT INFORMATION
  Report Type: Spontaneous
  Country: NL (occurrence: NL)
  Receive Date: 20130723
  Receipt Date: 20130729
  Transmission Date: 20140515
  Serious: Yes (Other)
  Sender: FDA-Public Use
  Company Number: NL-BRISTOL-MYERS SQUIBB COMPANY-19123850

PATIENT
  Sex: Male

DRUGS (2)
  1. GLUCOPHAGE [Suspect]
     Indication: TYPE 2 DIABETES MELLITUS
     Route: 048
     Dates: start: 2004, end: 2009
  2. LANTUS [Concomitant]
     Dates: start: 2004, end: 2009

REACTIONS (4)
  - Loss of consciousness [Unknown]
  - Back pain [Unknown]
  - Diarrhoea [Unknown]
  - Hypoglycaemia [Unknown]
